FAERS Safety Report 8578707-4 (Version None)
Quarter: 2012Q3

REPORT INFORMATION
  Report Type: 
  Country: None (occurrence: None)
  Receive Date: 20120808
  Receipt Date: 20120730
  Transmission Date: 20120928
  Serious: Yes (Other)
  Sender: FDA-Public Use
  Company Number: JP-VERTEX PHARMACEUTICALS INC.-AE-2012-011601

PATIENT
  Age: 63 Year
  Sex: Male

DRUGS (7)
  1. RIBAVIRIN [Concomitant]
     Route: 048
     Dates: start: 20120229, end: 20120328
  2. TELAVIC (TELAPREVIR) [Suspect]
     Route: 048
     Dates: start: 20120314, end: 20120328
  3. TELAVIC (TELAPREVIR) [Suspect]
     Indication: HEPATITIS C
     Route: 048
     Dates: start: 20120125
  4. MUCOSTA [Concomitant]
     Route: 048
     Dates: start: 20120127, end: 20120416
  5. RIBAVIRIN [Concomitant]
     Route: 048
     Dates: start: 20120222, end: 20120228
  6. PEG-INTRON [Concomitant]
     Indication: HEPATITIS C
     Route: 058
     Dates: start: 20120125, end: 20120328
  7. RIBAVIRIN [Concomitant]
     Indication: HEPATITIS C
     Route: 048
     Dates: start: 20120125, end: 20120221

REACTIONS (1)
  - RASH PAPULAR [None]
